FAERS Safety Report 5986659-6 (Version None)
Quarter: 2008Q4

REPORT INFORMATION
  Report Type: 
  Country: None (occurrence: None)
  Receive Date: 20081209
  Receipt Date: 20081127
  Transmission Date: 20090506
  Serious: Yes (Hospitalization)
  Sender: FDA-Public Use
  Company Number: FR-ROCHE-599889

PATIENT
  Age: 46 Year
  Sex: Male

DRUGS (4)
  1. XELODA [Suspect]
     Indication: RECTAL CANCER METASTATIC
     Dosage: FROM 25 MAY TO 25 SEPTEMBER TREATED WITH CAPECITABINE POST SURGERY AS ADJUVANT.
     Route: 048
     Dates: start: 20070108, end: 20070205
  2. LEXOMIL [Concomitant]
  3. IMOVANE [Concomitant]
  4. SEROPLEX [Concomitant]
     Dates: start: 20080601

REACTIONS (1)
  - MENINGITIS [None]
